FAERS Safety Report 4846941-2 (Version None)
Quarter: 2005Q4

REPORT INFORMATION
  Report Type: 
  Country: None (occurrence: None)
  Receive Date: 20051201
  Receipt Date: 20051118
  Transmission Date: 20060501
  Serious: Yes (Hospitalization, Other)
  Sender: FDA-Public Use
  Company Number: HQWYE661422NOV05

PATIENT
  Age: 51 Year
  Sex: Male

DRUGS (7)
  1. RAPAMUNE [Suspect]
     Indication: PROPHYLAXIS AGAINST TRANSPLANT REJECTION
     Dosage: 6 MG 1X PER 1 DAY; 2 MG 1X  PER 1 DAY
     Route: 048
     Dates: start: 20050824, end: 20050824
  2. RAPAMUNE [Suspect]
     Indication: PROPHYLAXIS AGAINST TRANSPLANT REJECTION
     Dosage: 6 MG 1X PER 1 DAY; 2 MG 1X  PER 1 DAY
     Route: 048
     Dates: start: 20050825
  3. CYCLOSPORINE [Concomitant]
  4. PREDNISONE [Concomitant]
  5. NISTATIN (NYSTATIN) [Concomitant]
  6. RANITIDINE [Concomitant]
  7. SULFAMETHOXAZOLE + TRIMETHOPRIM [Concomitant]

REACTIONS (1)
  - KIDNEY TRANSPLANT REJECTION [None]
